FAERS Safety Report 15114350 (Version 1)
Quarter: 2018Q3

REPORT INFORMATION
  Report Type: Report from Study
  Country: None (occurrence: BR)
  Receive Date: 20180706
  Receipt Date: 20180706
  Transmission Date: 20181010
  Serious: Yes (Hospitalization, Other)
  Sender: FDA-Public Use
  Company Number: BR-ABBVIE-18K-020-2315315-00

PATIENT
  Age: 59 Year
  Sex: Female
  Weight: 75 kg

DRUGS (3)
  1. HUMIRA [Suspect]
     Active Substance: ADALIMUMAB
     Indication: CROHN^S DISEASE
     Dosage: WEEK 0
     Route: 058
     Dates: start: 20161017, end: 20161017
  2. HUMIRA [Suspect]
     Active Substance: ADALIMUMAB
     Route: 058
  3. HUMIRA [Suspect]
     Active Substance: ADALIMUMAB
     Dosage: WEEK 2
     Route: 058
     Dates: start: 20161031, end: 20161031

REACTIONS (18)
  - Urinary tract infection [Recovered/Resolved]
  - Sinusitis [Recovering/Resolving]
  - Gastric disorder [Not Recovered/Not Resolved]
  - Pharyngitis streptococcal [Recovered/Resolved]
  - Throat irritation [Unknown]
  - Renal atrophy [Unknown]
  - Pain [Recovered/Resolved]
  - Urinary tract infection [Recovered/Resolved]
  - Diarrhoea [Not Recovered/Not Resolved]
  - Cystitis [Recovered/Resolved]
  - Hiatus hernia [Unknown]
  - Dyspepsia [Unknown]
  - Nasal congestion [Not Recovered/Not Resolved]
  - Pain [Recovered/Resolved]
  - Catarrh [Not Recovered/Not Resolved]
  - Insomnia [Unknown]
  - Discomfort [Recovered/Resolved]
  - Cough [Not Recovered/Not Resolved]

NARRATIVE: CASE EVENT DATE: 201612
